FAERS Safety Report 6184958-9 (Version None)
Quarter: 2009Q2

REPORT INFORMATION
  Report Type: 
  Country: None (occurrence: None)
  Receive Date: 20090511
  Receipt Date: 20090122
  Transmission Date: 20091009
  Serious: No
  Sender: FDA-Public Use
  Company Number: A0764805A

PATIENT
  Age: 56 Year
  Sex: Female

DRUGS (7)
  1. COREG CR [Suspect]
     Indication: HYPERTENSION
     Dosage: 10MG PER DAY
     Route: 048
     Dates: start: 20090119
  2. AVALIDE [Concomitant]
  3. LOVAZA [Concomitant]
  4. CLARINEX [Concomitant]
  5. VITAMIN D [Concomitant]
  6. CALCIUM [Concomitant]
  7. MULTI-VITAMIN [Concomitant]

REACTIONS (1)
  - COUGH [None]
